FAERS Safety Report 7080438-7 (Version None)
Quarter: 2010Q4

REPORT INFORMATION
  Report Type: 
  Country: None (occurrence: None)
  Receive Date: 20101103
  Receipt Date: 20101008
  Transmission Date: 20110411
  Serious: Yes (Other)
  Sender: FDA-Public Use
  Company Number: US-BAYER-201014674NA

PATIENT
  Age: 23 Year
  Sex: Female
  Weight: 73 kg

DRUGS (3)
  1. YAZ [Suspect]
     Indication: CONTRACEPTION
     Route: 048
     Dates: start: 20070901, end: 20081001
  2. LEXAPRO [Concomitant]
     Indication: DEPRESSION
     Dates: start: 20070626, end: 20071217
  3. WELLBUTRIN [Concomitant]
     Indication: DEPRESSION
     Dates: start: 20071217, end: 20080115

REACTIONS (7)
  - ABDOMINAL PAIN [None]
  - BACK PAIN [None]
  - BILIARY COLIC [None]
  - CHOLECYSTITIS ACUTE [None]
  - CHOLELITHIASIS [None]
  - POLYCYSTIC OVARIES [None]
  - VOMITING [None]
